FAERS Safety Report 7128416-3 (Version None)
Quarter: 2010Q4

REPORT INFORMATION
  Report Type: 
  Country: None (occurrence: None)
  Receive Date: 20101130
  Receipt Date: 20101119
  Transmission Date: 20110411
  Serious: Yes (Other)
  Sender: FDA-Public Use
  Company Number: ZA-JNJFOC-20101108257

PATIENT

DRUGS (1)
  1. CAELYX [Suspect]
     Indication: KAPOSI'S SARCOMA
     Dosage: 8-10 CYCLES
     Route: 042

REACTIONS (3)
  - DRUG INEFFECTIVE [None]
  - KAPOSI'S SARCOMA [None]
  - UNEVALUABLE EVENT [None]
